FAERS Safety Report 6760098-2 (Version None)
Quarter: 2010Q2

REPORT INFORMATION
  Report Type: 
  Country: None (occurrence: None)
  Receive Date: 20100608
  Receipt Date: 20100518
  Transmission Date: 20101027
  Serious: Yes (Other)
  Sender: FDA-Public Use
  Company Number: US-AMGEN-QUU415333

PATIENT
  Sex: Female

DRUGS (10)
  1. ENBREL [Suspect]
     Indication: PSORIASIS
     Route: 058
     Dates: start: 20030601, end: 20100301
  2. METHOTREXATE [Concomitant]
     Dates: start: 20030501, end: 20030901
  3. EVISTA [Concomitant]
  4. CLARITIN [Concomitant]
  5. NABUMETONE [Concomitant]
  6. ASPIRIN [Concomitant]
  7. ZOCOR [Concomitant]
  8. TOPROL-XL [Concomitant]
  9. VITAMINS [Concomitant]
  10. GARLIC [Concomitant]

REACTIONS (5)
  - MACROCYTOSIS [None]
  - PANCYTOPENIA [None]
  - PSORIASIS [None]
  - SKIN INFECTION [None]
  - WHITE BLOOD CELL COUNT DECREASED [None]
